FAERS Safety Report 9490591 (Version 1)
Quarter: 2013Q3

REPORT INFORMATION
  Report Type: Spontaneous
  Country: GB (occurrence: None)
  Receive Date: 20130826
  Receipt Date: 20130826
  Transmission Date: 20140515
  Serious: Yes (Other)
  Sender: FDA-Public Use
  Company Number: KAD201308-001052

PATIENT
  Age: 47 Year
  Sex: Male

DRUGS (3)
  1. RIBAVIRIN (RIBAVIRIN) [Suspect]
     Indication: HEPATITIS C
     Route: 048
     Dates: start: 20121109
  2. INTERFERON ALFA-2A [Suspect]
     Indication: HEPATITIS C
     Route: 058
     Dates: start: 20121109
  3. INCIVO [Suspect]
     Indication: HEPATITIS C
     Dosage: 3 TIMES A DAY
     Route: 048
     Dates: start: 20121109

REACTIONS (12)
  - Disturbance in attention [None]
  - Depression [None]
  - Insomnia [None]
  - Dyspepsia [None]
  - Pruritus [None]
  - Depressed mood [None]
  - Myalgia [None]
  - Nausea [None]
  - Anal pruritus [None]
  - Rash [None]
  - Rectal haemorrhage [None]
  - Fatigue [None]
